FAERS Safety Report 14525566 (Version 1)
Quarter: 2018Q1

REPORT INFORMATION
  Report Type: Spontaneous
  Country: US (occurrence: US)
  Receive Date: 20180211
  Receipt Date: 20180211
  Transmission Date: 20180509
  Serious: Yes (Hospitalization, Disabling)
  Sender: FDA-Public Use
  Company Number: None

PATIENT
  Age: 40 Year
  Sex: Male
  Weight: 71.1 kg

DRUGS (1)
  1. SCOPOLAMINE [Suspect]
     Active Substance: SCOPOLAMINE
     Indication: PROPHYLAXIS AGAINST MOTION SICKNESS
     Dosage: ?          QUANTITY:1 PATCH(ES);OTHER FREQUENCY:EVERY 3 DAYS;?
     Route: 062
     Dates: start: 20180124, end: 20180130

REACTIONS (8)
  - Dizziness [None]
  - Withdrawal syndrome [None]
  - Visual impairment [None]
  - Nausea [None]
  - Vertigo [None]
  - Balance disorder [None]
  - Vomiting [None]
  - Vision blurred [None]

NARRATIVE: CASE EVENT DATE: 20180201
